FAERS Safety Report 19723276 (Version 6)
Quarter: 2022Q3

REPORT INFORMATION
  Report Type: Report from Study
  Country: FR (occurrence: FR)
  Receive Date: 20210819
  Receipt Date: 20220702
  Transmission Date: 20221027
  Serious: Yes (Hospitalization, Other)
  Sender: FDA-Public Use
  Company Number: FR-TAKEDA-2021TUS051636

PATIENT
  Age: 34 Year
  Sex: Female

DRUGS (17)
  1. TEDUGLUTIDE [Suspect]
     Active Substance: TEDUGLUTIDE
     Indication: Short-bowel syndrome
     Dosage: 0.05 MILLIGRAM/KILOGRAM, QD
     Route: 042
     Dates: start: 20160705, end: 20200429
  2. TEDUGLUTIDE [Suspect]
     Active Substance: TEDUGLUTIDE
     Indication: Short-bowel syndrome
     Dosage: 0.05 MILLIGRAM/KILOGRAM, QD
     Route: 042
     Dates: start: 20160705, end: 20200429
  3. TEDUGLUTIDE [Suspect]
     Active Substance: TEDUGLUTIDE
     Indication: Short-bowel syndrome
     Dosage: 0.05 MILLIGRAM/KILOGRAM, QD
     Route: 042
     Dates: start: 20160705, end: 20200429
  4. TEDUGLUTIDE [Suspect]
     Active Substance: TEDUGLUTIDE
     Indication: Short-bowel syndrome
     Dosage: 0.05 MILLIGRAM/KILOGRAM, QD
     Route: 042
     Dates: start: 20160705, end: 20200429
  5. MAGNESIUM [Concomitant]
     Active Substance: MAGNESIUM
     Indication: Polyarthritis
     Dosage: 1 DOSAGE FORM, BID
     Route: 048
     Dates: start: 20210610
  6. MAGNESIUM [Concomitant]
     Active Substance: MAGNESIUM
     Indication: Chondrocalcinosis
  7. MAGNESIUM [Concomitant]
     Active Substance: MAGNESIUM
     Indication: Hypomagnesaemia
  8. Spasmag [Concomitant]
     Indication: Polyarthritis
     Dosage: 500 MILLILITER, Q2WEEKS
     Route: 042
     Dates: start: 20210107, end: 20210609
  9. Spasmag [Concomitant]
     Indication: Chondrocalcinosis
     Dosage: 500 MILLILITER, 1/WEEK
     Route: 042
     Dates: start: 20210610, end: 20210721
  10. Spasmag [Concomitant]
     Indication: Hypomagnesaemia
     Dosage: 500 MILLILITER, Q2WEEKS
     Route: 042
     Dates: start: 20210722
  11. CERNEVIT [Concomitant]
     Active Substance: VITAMINS
     Indication: Polyarthritis
     Dosage: 500 MILLILITER, 1/WEEK
     Route: 042
     Dates: start: 20210107, end: 20210609
  12. CERNEVIT [Concomitant]
     Active Substance: VITAMINS
     Indication: Chondrocalcinosis
     Dosage: 500 MILLILITER, 1/WEEK
     Route: 042
     Dates: start: 20210610, end: 20210721
  13. CERNEVIT [Concomitant]
     Active Substance: VITAMINS
     Indication: Hypomagnesaemia
     Dosage: 500 MILLILITER, Q2WEEKS
     Route: 042
     Dates: start: 20210722
  14. IRON\MINERALS\POTASSIUM IOD\SODIUM FLUORIDE\SODIUM MOLYBDATE\SODIUM SE [Concomitant]
     Active Substance: IRON\MINERALS\POTASSIUM IOD\SODIUM FLUORIDE\SODIUM MOLYBDATE\SODIUM SELENITE\ZINC
     Indication: Polyarthritis
     Dosage: 500 MILLILITER, 1/WEEK
     Route: 042
     Dates: start: 20210107, end: 20210609
  15. IRON\MINERALS\POTASSIUM IOD\SODIUM FLUORIDE\SODIUM MOLYBDATE\SODIUM SE [Concomitant]
     Active Substance: IRON\MINERALS\POTASSIUM IOD\SODIUM FLUORIDE\SODIUM MOLYBDATE\SODIUM SELENITE\ZINC
     Indication: Chondrocalcinosis
     Dosage: 500 MILLILITER, 1/WEEK
     Route: 042
     Dates: start: 20210610, end: 20210721
  16. IRON\MINERALS\POTASSIUM IOD\SODIUM FLUORIDE\SODIUM MOLYBDATE\SODIUM SE [Concomitant]
     Active Substance: IRON\MINERALS\POTASSIUM IOD\SODIUM FLUORIDE\SODIUM MOLYBDATE\SODIUM SELENITE\ZINC
     Indication: Hypomagnesaemia
     Dosage: 500 MILLILITER, Q2WEEKS
     Route: 042
     Dates: start: 20210722
  17. Clamoxyl [Concomitant]
     Indication: Lung disorder
     Dosage: 1 GRAM, TID
     Route: 048
     Dates: start: 20200924, end: 20200930

REACTIONS (3)
  - Pyrexia [Recovered/Resolved]
  - Pulmonary tuberculosis [Recovered/Resolved]
  - Influenza like illness [Recovered/Resolved]

NARRATIVE: CASE EVENT DATE: 20200920
